FAERS Safety Report 22248629 (Version 2)
Quarter: 2023Q2

REPORT INFORMATION
  Report Type: Spontaneous
  Country: JP (occurrence: JP)
  Receive Date: 20230425
  Receipt Date: 20230428
  Transmission Date: 20230721
  Serious: Yes (Death, Life-Threatening, Other)
  Sender: FDA-Public Use
  Company Number: JP-AUROBINDO-AUR-APL-2023-032568

PATIENT
  Age: 82 Year
  Sex: Female

DRUGS (1)
  1. FOLOTYN [Suspect]
     Active Substance: PRALATREXATE
     Indication: Product used for unknown indication
     Dosage: 20 MG/M2, EVERY WEEK
     Route: 042
     Dates: start: 20230117, end: 20230227

REACTIONS (2)
  - Sepsis [Fatal]
  - Blood pressure decreased [Unknown]

NARRATIVE: CASE EVENT DATE: 20230308
